FAERS Safety Report 5909435-9 (Version None)
Quarter: 2008Q4

REPORT INFORMATION
  Report Type: 
  Country: None (occurrence: None)
  Receive Date: 20081006
  Receipt Date: 20080924
  Transmission Date: 20090506
  Serious: Yes (Death)
  Sender: FDA-Public Use
  Company Number: JP-PFIZER INC-2008081605

PATIENT
  Age: 79 Year
  Sex: Male

DRUGS (2)
  1. IRINOTECAN HCL [Suspect]
     Indication: LUNG ADENOCARCINOMA RECURRENT
     Route: 042
     Dates: start: 20080901
  2. CARBOPLATIN [Concomitant]
     Indication: LUNG ADENOCARCINOMA RECURRENT

REACTIONS (2)
  - DIARRHOEA [None]
  - SEPSIS [None]
